FAERS Safety Report 4682603-2 (Version None)
Quarter: 2005Q2

REPORT INFORMATION
  Report Type: 
  Country: None (occurrence: None)
  Receive Date: 20050606
  Receipt Date: 20050419
  Transmission Date: 20051028
  Serious: Yes (Hospitalization)
  Sender: FDA-Public Use
  Company Number: JP-MERCK-0504USA03993

PATIENT
  Age: 43 Year
  Sex: Female

DRUGS (11)
  1. PRIMAXIN [Suspect]
     Indication: PNEUMONIA
     Route: 042
     Dates: start: 20050408, end: 20050417
  2. KLARICID [Suspect]
     Indication: PNEUMONIA
     Route: 048
     Dates: start: 20050414, end: 20050417
  3. AMINOPHYLLINE [Concomitant]
     Indication: BRONCHOSTENOSIS
     Route: 042
     Dates: start: 20050407, end: 20050415
  4. ERYTHROMYCIN [Suspect]
     Indication: PNEUMONIA
     Route: 042
     Dates: start: 20050408, end: 20050413
  5. [THERAPY UNSPECIFIED] [Concomitant]
     Indication: PNEUMONIA
     Route: 042
     Dates: start: 20050407, end: 20050409
  6. NOVOLIN 30R [Concomitant]
     Indication: DIABETES MELLITUS MANAGEMENT
     Route: 058
     Dates: start: 20050407
  7. NOVOLIN 30R [Concomitant]
     Route: 058
     Dates: start: 20050407
  8. SOLU-MEDROL [Concomitant]
     Indication: PNEUMONIA
     Route: 042
     Dates: start: 20050407, end: 20050409
  9. OMEPRAL [Concomitant]
     Indication: PROPHYLAXIS AGAINST GASTROINTESTINAL ULCER
     Route: 042
     Dates: start: 20050407, end: 20050413
  10. LASIX [Concomitant]
     Indication: POLYURIA
     Route: 042
     Dates: start: 20050408, end: 20050413
  11. CLAFORAN [Concomitant]
     Indication: PNEUMONIA
     Route: 042
     Dates: start: 20050407, end: 20050407

REACTIONS (6)
  - EXANTHEM [None]
  - HAEMORRHAGE [None]
  - PRURITUS [None]
  - PURPURA [None]
  - PYREXIA [None]
  - RASH MACULO-PAPULAR [None]
